FAERS Safety Report 10267958 (Version 1)
Quarter: 2014Q2

REPORT INFORMATION
  Report Type: Spontaneous
  Country: US (occurrence: None)
  Receive Date: 20140626
  Receipt Date: 20140626
  Transmission Date: 20141212
  Serious: Yes (Other)
  Sender: FDA-Public Use
  Company Number: None

PATIENT
  Age: 40 Year
  Sex: Female
  Weight: 69.4 kg

DRUGS (1)
  1. SULFAMETHOXAZOLE TRIMETHOPRIM [Suspect]
     Indication: URINARY TRACT INFECTION
     Dosage: 1 PILL, TWICE DAILY?

REACTIONS (4)
  - Skin discolouration [None]
  - Sensitivity of teeth [None]
  - Tongue disorder [None]
  - Feeling hot [None]
